FAERS Safety Report 11691210 (Version 1)
Quarter: 2015Q4

REPORT INFORMATION
  Report Type: Spontaneous
  Country: US (occurrence: US)
  Receive Date: 20151102
  Receipt Date: 20151102
  Transmission Date: 20160304
  Serious: No
  Sender: FDA-Public Use
  Company Number: US-PERRIGO-15US009815

PATIENT
  Sex: Male
  Weight: 72.56 kg

DRUGS (2)
  1. NICOTINE MINI [Suspect]
     Active Substance: NICOTINE
     Dosage: HALF LOZENGE, UNKNOWN
     Route: 002
     Dates: start: 2015
  2. NICOTINE MINI [Suspect]
     Active Substance: NICOTINE
     Indication: SMOKING CESSATION THERAPY
     Dosage: 2 MG, TEN TIMES DAILY
     Route: 002
     Dates: start: 2015, end: 2015

REACTIONS (2)
  - Wrong technique in product usage process [Not Recovered/Not Resolved]
  - Oral discomfort [Unknown]

NARRATIVE: CASE EVENT DATE: 2015
